FAERS Safety Report 5029985-X (Version None)
Quarter: 2006Q2

REPORT INFORMATION
  Report Type: 
  Country: None (occurrence: None)
  Receive Date: 20060614
  Receipt Date: 20060524
  Transmission Date: 20061013
  Serious: Yes (Hospitalization)
  Sender: FDA-Public Use
  Company Number: US200605005554

PATIENT
  Age: 73 Year
  Sex: Female

DRUGS (2)
  1. FORTEO [Suspect]
     Indication: OSTEOPOROSIS
     Dosage: 20 UG
  2. FORTEO [Concomitant]

REACTIONS (4)
  - CATHETER RELATED INFECTION [None]
  - INTERNATIONAL NORMALISED RATIO DECREASED [None]
  - MUSCULOSKELETAL STIFFNESS [None]
  - VASCULAR OPERATION [None]
